FAERS Safety Report 11445138 (Version 1)
Quarter: 2015Q3

REPORT INFORMATION
  Report Type: Spontaneous
  Country: IT (occurrence: IT)
  Receive Date: 20150902
  Receipt Date: 20150902
  Transmission Date: 20151125
  Serious: Yes (Other)
  Sender: FDA-Public Use
  Company Number: IT-WATSON-2015-18245

PATIENT
  Age: 67 Year
  Sex: Male

DRUGS (1)
  1. RIVASTIGMINE. [Suspect]
     Active Substance: RIVASTIGMINE
     Indication: COGNITIVE DISORDER
     Dosage: 4.6 MG, CYCLICAL
     Route: 062

REACTIONS (2)
  - Erythema [Recovered/Resolved]
  - Product measured potency issue [Recovered/Resolved]

NARRATIVE: CASE EVENT DATE: 201505
